FAERS Safety Report 21058963 (Version 1)
Quarter: 2022Q3

REPORT INFORMATION
  Report Type: Spontaneous
  Country: DE (occurrence: DE)
  Receive Date: 20220708
  Receipt Date: 20220708
  Transmission Date: 20221027
  Serious: Yes (Other)
  Sender: FDA-Public Use
  Company Number: None

PATIENT
  Age: 57 Year
  Sex: Female
  Weight: 95 kg

DRUGS (12)
  1. LENVIMA [Interacting]
     Active Substance: LENVATINIB
     Indication: Immunosuppressant drug therapy
     Dosage: DOSE AND FREQUENCY UNKNOWN
     Route: 048
     Dates: start: 20211118
  2. LENVIMA [Interacting]
     Active Substance: LENVATINIB
     Indication: Chemotherapy
  3. LENVIMA [Interacting]
     Active Substance: LENVATINIB
     Indication: Cervix carcinoma
  4. KEYTRUDA [Interacting]
     Active Substance: PEMBROLIZUMAB
     Indication: Cervix carcinoma
     Route: 065
  5. KEYTRUDA [Interacting]
     Active Substance: PEMBROLIZUMAB
     Indication: Chemotherapy
  6. KEYTRUDA [Interacting]
     Active Substance: PEMBROLIZUMAB
     Indication: Immunosuppressant drug therapy
  7. DIMENHYDRINATE [Interacting]
     Active Substance: DIMENHYDRINATE
     Indication: Cervix carcinoma
     Dosage: SUPPOSITORY
     Route: 065
     Dates: start: 20211118
  8. DIMENHYDRINATE [Interacting]
     Active Substance: DIMENHYDRINATE
     Indication: Immunosuppressant drug therapy
  9. DIMENHYDRINATE [Interacting]
     Active Substance: DIMENHYDRINATE
     Indication: Chemotherapy
  10. BISOPROLOL [Concomitant]
     Active Substance: BISOPROLOL
     Indication: Product used for unknown indication
     Dosage: 2.5 (UNITS UNKNOWN), FREQUENCY UNKNOWN
     Route: 065
  11. LEVOTHYROXINE SODIUM\POTASSIUM IODIDE [Concomitant]
     Active Substance: LEVOTHYROXINE SODIUM\POTASSIUM IODIDE
     Indication: Product used for unknown indication
     Dosage: 100 (UNITS UNKNOWN), FREQUENCY UNKNOWN
     Route: 065
  12. PANTOPRAZOLE [Concomitant]
     Active Substance: PANTOPRAZOLE
     Indication: Product used for unknown indication
     Route: 065

REACTIONS (4)
  - Circulatory collapse [Recovered/Resolved]
  - Muscle spasms [Recovered/Resolved]
  - Amnesia [Recovered/Resolved]
  - Drug interaction [Recovered/Resolved]

NARRATIVE: CASE EVENT DATE: 20220101
